FAERS Safety Report 5934918-5 (Version None)
Quarter: 2008Q4

REPORT INFORMATION
  Report Type: 
  Country: None (occurrence: None)
  Receive Date: 20081027
  Receipt Date: 20081015
  Transmission Date: 20090506
  Serious: Yes (Hospitalization)
  Sender: FDA-Public Use
  Company Number: 1-16748136

PATIENT
  Age: 51 Year
  Sex: Female

DRUGS (4)
  1. OXCARBAZEPINE [Suspect]
     Indication: MANIA
     Dosage: 600 MG TWICE DAILY, ORAL
     Route: 048
  2. VALPROATE SODIUM [Suspect]
     Dosage: 1000 MG TWICE DAILY, ORAL
     Route: 048
  3. CLONAZEPAM [Concomitant]
  4. GLUCOPHAGE [Concomitant]

REACTIONS (6)
  - ANTICONVULSANT DRUG LEVEL INCREASED [None]
  - CATATONIA [None]
  - DRUG INTERACTION [None]
  - MANIA [None]
  - OEDEMA PERIPHERAL [None]
  - PLATELET COUNT DECREASED [None]
